FAERS Safety Report 24939959 (Version 1)
Quarter: 2025Q1

REPORT INFORMATION
  Report Type: Spontaneous
  Country: SA (occurrence: SA)
  Receive Date: 20250207
  Receipt Date: 20250207
  Transmission Date: 20250409
  Serious: Yes (Death)
  Sender: SANOFI AVENTIS
  Company Number: SA-SA-2025SA034926

PATIENT
  Sex: Male

DRUGS (1)
  1. MYOZYME [Suspect]
     Active Substance: ALGLUCOSIDASE ALFA
     Indication: Glycogen storage disease type II
     Dosage: 40 MG/KG, QW
     Route: 065

REACTIONS (2)
  - Disease progression [Fatal]
  - Off label use [Unknown]
